FAERS Safety Report 6467261-9 (Version None)
Quarter: 2009Q4

REPORT INFORMATION
  Report Type: 
  Country: None (occurrence: None)
  Receive Date: 20091202
  Receipt Date: 20091125
  Transmission Date: 20100525
  Serious: Yes (Life-Threatening, Other)
  Sender: FDA-Public Use
  Company Number: IT-NOVOPROD-292810

PATIENT
  Sex: Female

DRUGS (3)
  1. NOVOMIX 30 FLEXPEN [Suspect]
     Indication: DRUG USE FOR UNKNOWN INDICATION
     Dosage: 18 IU, QD
     Route: 058
     Dates: end: 20091007
  2. GLICONORM [Concomitant]
     Dosage: UNK
     Route: 048
  3. GLUCOPHAGE [Concomitant]
     Dosage: 2000 MG, QD
     Route: 048

REACTIONS (5)
  - ABDOMINAL PAIN [None]
  - COLD SWEAT [None]
  - PRODUCT QUALITY ISSUE [None]
  - PRODUCT RECONSTITUTION ISSUE [None]
  - TREMOR [None]
